FAERS Safety Report 7909505 (Version 4)
Quarter: 2012Q4

REPORT INFORMATION
  Report Type: 
  Country: US (occurrence: US)
  Receive Date: 20110421
  Receipt Date: 20120917
  Transmission Date: 20130627
  Serious: Yes (Other)
  Sender: FDA-Public Use
  Company Number: US-ASTRAZENECA-2010SE61174

PATIENT
  Age: 49 Year
  Sex: Female

DRUGS (1)
  1. TOPROL XL [Suspect]
     Route: 048

REACTIONS (5)
  - Sarcoidosis [Unknown]
  - Respiratory disorder [Unknown]
  - Lymphadenopathy [Unknown]
  - Dyspnoea [Unknown]
  - Malaise [Unknown]
